FAERS Safety Report 8320997-7 (Version None)
Quarter: 2012Q2

REPORT INFORMATION
  Report Type: 
  Country: None (occurrence: None)
  Receive Date: 20120430
  Receipt Date: 20120418
  Transmission Date: 20120825
  Serious: Yes (Hospitalization)
  Sender: FDA-Public Use
  Company Number: RS-MPIJNJ-2012-02759

PATIENT

DRUGS (10)
  1. DEXAMETHASONE [Suspect]
     Indication: MULTIPLE MYELOMA
     Dosage: UNK
     Route: 065
     Dates: start: 20111123
  2. NORVASC [Concomitant]
     Indication: HYPERTENSION
  3. AMIKACIN [Suspect]
     Route: 065
  4. DIUNORM [Concomitant]
     Indication: HYPERTENSION
  5. LOSARTAN POTASSIUM [Concomitant]
     Indication: HYPERTENSION
  6. ADRIABLASTIN [Suspect]
     Indication: MULTIPLE MYELOMA
     Dosage: UNK
     Route: 065
     Dates: start: 20111123
  7. MEROPENEM [Suspect]
     Route: 065
  8. VELCADE [Suspect]
     Indication: MULTIPLE MYELOMA
     Dosage: UNK
     Route: 042
     Dates: end: 20120301
  9. PANTOPRAZOLE [Concomitant]
     Indication: HYPERTENSION
  10. VANCOMYCIN [Suspect]
     Route: 065

REACTIONS (6)
  - DIARRHOEA [None]
  - MALAISE [None]
  - HYPOPROTEINAEMIA [None]
  - HYPERPYREXIA [None]
  - HYPOTENSION [None]
  - PSEUDOMEMBRANOUS COLITIS [None]
